FAERS Safety Report 18641417 (Version 1)
Quarter: 2020Q4

REPORT INFORMATION
  Report Type: Spontaneous
  Country: GB (occurrence: GB)
  Receive Date: 20201221
  Receipt Date: 20201221
  Transmission Date: 20210114
  Serious: Yes (Other)
  Sender: FDA-Public Use
  Company Number: GB-TEVA-2020-GB-1859322

PATIENT
  Age: 71 Year
  Sex: Female
  Weight: 73 kg

DRUGS (6)
  1. PREDNISOLONE. [Concomitant]
     Active Substance: PREDNISOLONE
  2. NITROFURANTOIN. [Suspect]
     Active Substance: NITROFURANTOIN
     Indication: CYSTITIS
     Route: 048
     Dates: start: 202008, end: 202008
  3. HYDROXYCHLOROQUINE SULFATE. [Concomitant]
     Active Substance: HYDROXYCHLOROQUINE SULFATE
  4. GENERICS UK CO-AMOXICLAV [Concomitant]
     Active Substance: AMOXICILLIN\CLAVULANIC ACID
  5. METHOTREXATE. [Concomitant]
     Active Substance: METHOTREXATE
  6. FOLIC ACID. [Concomitant]
     Active Substance: FOLIC ACID

REACTIONS (2)
  - Cutaneous vasculitis [Recovering/Resolving]
  - Vasculitic ulcer [Recovering/Resolving]

NARRATIVE: CASE EVENT DATE: 202008
